FAERS Safety Report 5373566-5 (Version None)
Quarter: 2007Q2

REPORT INFORMATION
  Report Type: 
  Country: None (occurrence: None)
  Receive Date: 20070628
  Receipt Date: 20070627
  Transmission Date: 20071010
  Serious: Yes (Other)
  Sender: FDA-Public Use
  Company Number: A0660111A

PATIENT
  Age: 47 Year
  Sex: Female

DRUGS (1)
  1. ALLI [Suspect]
     Route: 065
     Dates: start: 20070615, end: 20070625

REACTIONS (6)
  - ANAPHYLACTIC SHOCK [None]
  - DYSPNOEA [None]
  - RASH [None]
  - RESPIRATORY DISTRESS [None]
  - SWELLING FACE [None]
  - VOMITING [None]
